FAERS Safety Report 23601991 (Version 7)
Quarter: 2025Q2

REPORT INFORMATION
  Report Type: Spontaneous
  Country: US (occurrence: US)
  Receive Date: 20240306
  Receipt Date: 20250415
  Transmission Date: 20250717
  Serious: No
  Sender: SANOFI AVENTIS
  Company Number: US-SA-2023SA363184

PATIENT
  Age: 79 Year
  Sex: Female
  Weight: 97.73 kg

DRUGS (13)
  1. DUPIXENT [Suspect]
     Active Substance: DUPILUMAB
     Indication: Dermatitis
     Dosage: 300 MG, QOW
     Route: 058
     Dates: start: 20230731
  2. DUPIXENT [Suspect]
     Active Substance: DUPILUMAB
     Indication: Eczema
  3. MELOXICAM [Concomitant]
     Active Substance: MELOXICAM
  4. FERROUS GLUCONATE [Concomitant]
     Active Substance: FERROUS GLUCONATE
  5. ALBUTEROL SULFATE [Concomitant]
     Active Substance: ALBUTEROL SULFATE
  6. VITAMIN D3 [Concomitant]
     Active Substance: CHOLECALCIFEROL
  7. LYSINE [Concomitant]
     Active Substance: LYSINE
  8. METOPROLOL SUCCINATE [Concomitant]
     Active Substance: METOPROLOL SUCCINATE
  9. VITAMINS [Concomitant]
     Active Substance: VITAMINS
  10. IRON [Concomitant]
     Active Substance: IRON
  11. CYANOCOBALAMIN [Concomitant]
     Active Substance: CYANOCOBALAMIN
  12. PREDNISONE [Concomitant]
     Active Substance: PREDNISONE
  13. CRANBERRY [Concomitant]
     Active Substance: CRANBERRY

REACTIONS (6)
  - Dry skin [Not Recovered/Not Resolved]
  - Sciatica [Not Recovered/Not Resolved]
  - Pruritus [Recovering/Resolving]
  - Skin exfoliation [Not Recovered/Not Resolved]
  - Product use in unapproved indication [Unknown]
  - Inappropriate schedule of product administration [Unknown]

NARRATIVE: CASE EVENT DATE: 20230825
